FAERS Safety Report 9805310 (Version 1)
Quarter: 2014Q1

REPORT INFORMATION
  Report Type: Spontaneous
  Country: GB (occurrence: None)
  Receive Date: 20140106
  Receipt Date: 20140106
  Transmission Date: 20141002
  Serious: Yes (Life-Threatening, Hospitalization, Other)
  Sender: FDA-Public Use
  Company Number: FK201305582

PATIENT
  Age: 53 Year
  Sex: Female

DRUGS (11)
  1. METHOTREXATE (METHOTREXATE) [Suspect]
     Indication: PRODUCT USED FOR UNKNOWN INDICATION
     Route: 048
  2. HUMIRA (ADALIMUMAB) OPEN LABEL [Suspect]
     Indication: PSORIASIS
     Route: 058
     Dates: start: 201211
  3. PARACETAMOL [Concomitant]
  4. PREGABALIN [Concomitant]
  5. SIMVASTATIN [Concomitant]
  6. SOLIFENACIN [Concomitant]
  7. VENLAFAXINE [Concomitant]
  8. ZOPICLONE [Concomitant]
  9. CODEINE (CODEINE) [Concomitant]
  10. FOLIC ACID [Concomitant]
  11. ORLISTAT (ORLISTAT) [Concomitant]

REACTIONS (1)
  - Tubular breast carcinoma [None]
